FAERS Safety Report 5198932-2 (Version None)
Quarter: 2006Q4

REPORT INFORMATION
  Report Type: 
  Country: None (occurrence: None)
  Receive Date: 20060921
  Receipt Date: 20050831
  Transmission Date: 20070319
  Serious: Yes (Other)
  Sender: FDA-Public Use
  Company Number: 2005122780

PATIENT
  Age: 8 Year
  Sex: Male

DRUGS (2)
  1. DILANTIN [Suspect]
     Indication: CONVULSION
     Dosage: ORAL
     Route: 048
     Dates: start: 20050801
  2. TRILEPTAL [Suspect]
     Indication: CONVULSION
     Dosage: 300 MG (150 MG, 2 IN 1 D)
     Dates: start: 20050812

REACTIONS (4)
  - CONVULSION [None]
  - DIZZINESS [None]
  - PSYCHOMOTOR HYPERACTIVITY [None]
  - RASH GENERALISED [None]
